FAERS Safety Report 25660765 (Version 1)
Quarter: 2025Q3

REPORT INFORMATION
  Report Type: Spontaneous
  Country: EU (occurrence: EU)
  Receive Date: 20250808
  Receipt Date: 20250808
  Transmission Date: 20251020
  Serious: Yes (Other)
  Sender: RANBAXY
  Company Number: EU-SUN PHARMACEUTICAL INDUSTRIES LTD-2025RR-521645

PATIENT
  Sex: Female

DRUGS (4)
  1. ROSUVASTATIN [Suspect]
     Active Substance: ROSUVASTATIN
     Indication: Hypercholesterolaemia
     Route: 048
  2. EZETIMIBE [Suspect]
     Active Substance: EZETIMIBE
     Indication: Hypercholesterolaemia
     Route: 048
  3. INCLACUMAB [Suspect]
     Active Substance: INCLACUMAB
     Indication: Blood cholesterol increased
     Route: 065
     Dates: start: 202412
  4. INCLACUMAB [Suspect]
     Active Substance: INCLACUMAB
     Route: 065
     Dates: start: 202503

REACTIONS (2)
  - Low density lipoprotein increased [Unknown]
  - Drug ineffective [Unknown]
